FAERS Safety Report 5481965-6 (Version None)
Quarter: 2007Q4

REPORT INFORMATION
  Report Type: 
  Country: None (occurrence: None)
  Receive Date: 20071005
  Receipt Date: 20070911
  Transmission Date: 20080405
  Serious: Yes (Other)
  Sender: FDA-Public Use
  Company Number: 2007-164727-NL

PATIENT
  Age: 38 Year
  Sex: Female
  Weight: 63.5 kg

DRUGS (1)
  1. NUVARING [Suspect]
     Indication: CONTRACEPTION
     Dosage: VAGINAL, 3 WEEKS IN, 1 WEEK OUT
     Dates: start: 20050101, end: 20070921

REACTIONS (22)
  - BREAST ENLARGEMENT [None]
  - BREAST TENDERNESS [None]
  - DEPRESSION [None]
  - DIZZINESS [None]
  - FATIGUE [None]
  - FLUID RETENTION [None]
  - FOOD ALLERGY [None]
  - HEADACHE [None]
  - INSOMNIA [None]
  - JOINT SWELLING [None]
  - KIDNEY INFECTION [None]
  - METRORRHAGIA [None]
  - MOOD ALTERED [None]
  - NAUSEA [None]
  - NIGHT SWEATS [None]
  - PAIN IN EXTREMITY [None]
  - PALPITATIONS [None]
  - POLLAKIURIA [None]
  - RASH [None]
  - SINUSITIS [None]
  - VULVOVAGINAL DRYNESS [None]
  - WEIGHT FLUCTUATION [None]
